FAERS Safety Report 8312084-9 (Version None)
Quarter: 2012Q2

REPORT INFORMATION
  Report Type: 
  Country: None (occurrence: None)
  Receive Date: 20120425
  Receipt Date: 20120410
  Transmission Date: 20120825
  Serious: Yes (Hospitalization, Other)
  Sender: FDA-Public Use
  Company Number: US-ENDO PHARMACEUTICALS INC.-OPER20120506

PATIENT
  Sex: Male

DRUGS (5)
  1. OPANA ER [Suspect]
     Indication: BACK PAIN
     Route: 048
     Dates: start: 20050101
  2. OPANA ER [Suspect]
     Route: 048
  3. OPANA ER [Suspect]
     Route: 048
  4. OPANA ER [Suspect]
     Route: 048
  5. OPANA ER [Suspect]
     Route: 048

REACTIONS (3)
  - INAPPROPRIATE SCHEDULE OF DRUG ADMINISTRATION [None]
  - ABDOMINAL PAIN UPPER [None]
  - NECROTISING FASCIITIS [None]
